FAERS Safety Report 7320232-2 (Version None)
Quarter: 2011Q1

REPORT INFORMATION
  Report Type: 
  Country: None (occurrence: None)
  Receive Date: 20110214
  Receipt Date: 20110131
  Transmission Date: 20110831
  Serious: Yes (Death, Hospitalization)
  Sender: FDA-Public Use
  Company Number: UTC-004377

PATIENT
  Age: 69 Year
  Sex: Female
  Weight: 52.6 kg

DRUGS (4)
  1. REVATIO [Concomitant]
  2. REMODULIN [Suspect]
     Indication: PULMONARY HYPERTENSION
     Dosage: 36 UG/KG (0.025 UG/KG, 1 IN 1 MIN), INTRAVENOUS
     Route: 042
     Dates: start: 20101211
  3. TRACLEER [Concomitant]
  4. DIURETICS [Concomitant]

REACTIONS (1)
  - CHEST PAIN [None]
